FAERS Safety Report 8952511 (Version 4)
Quarter: 2015Q1

REPORT INFORMATION
  Report Type: Spontaneous
  Country: US (occurrence: US)
  Receive Date: 20121205
  Receipt Date: 20150120
  Transmission Date: 20150721
  Serious: Yes (Hospitalization, Other)
  Sender: FDA-Public Use
  Company Number: US-BAYER-2012-126400

PATIENT
  Age: 36 Year
  Sex: Female

DRUGS (15)
  1. YAZ [Suspect]
     Active Substance: DROSPIRENONE\ETHINYL ESTRADIOL
     Dosage: 1 TABLET, DAILY
  2. OMEPRAZOLE. [Concomitant]
     Active Substance: OMEPRAZOLE
  3. INVEGA [Concomitant]
     Active Substance: PALIPERIDONE
     Dosage: 9 MG, DAILY
     Route: 048
     Dates: start: 20100430, end: 20110624
  4. ADVAIR HFA [Concomitant]
     Active Substance: FLUTICASONE PROPIONATE\SALMETEROL XINAFOATE
  5. ASPIRIN. [Concomitant]
     Active Substance: ASPIRIN
  6. DEPAKOTE [Concomitant]
     Active Substance: DIVALPROEX SODIUM
  7. DILTIAZEM [Concomitant]
     Active Substance: DILTIAZEM
  8. KLONOPIN [Concomitant]
     Active Substance: CLONAZEPAM
  9. ALLEGRA [Concomitant]
     Active Substance: FEXOFENADINE HYDROCHLORIDE
  10. REQUIP [Concomitant]
     Active Substance: ROPINIROLE HYDROCHLORIDE
  11. MOTRIN [Concomitant]
     Active Substance: IBUPROFEN
  12. METRONIDAZOLE. [Concomitant]
     Active Substance: METRONIDAZOLE
     Dosage: 500 MG, UNK
     Dates: start: 20101206
  13. TRAZODONE [Concomitant]
     Active Substance: TRAZODONE HYDROCHLORIDE
     Dosage: 50 MG, UNK
     Dates: start: 20101220
  14. YASMIN [Suspect]
     Active Substance: DROSPIRENONE\ETHINYL ESTRADIOL
     Indication: DYSMENORRHOEA
  15. PROPRANOLOL [Concomitant]
     Active Substance: PROPRANOLOL\PROPRANOLOL HYDROCHLORIDE
     Dosage: 20 MG, UNK
     Dates: start: 20101201

REACTIONS (5)
  - Pain [None]
  - Pulmonary embolism [None]
  - Cholecystectomy [None]
  - Injury [None]
  - Cholelithiasis [None]

NARRATIVE: CASE EVENT DATE: 2009
